FAERS Safety Report 5613037-1 (Version None)
Quarter: 2008Q1

REPORT INFORMATION
  Report Type: 
  Country: None (occurrence: None)
  Receive Date: 20080204
  Receipt Date: 20080123
  Transmission Date: 20080703
  Serious: Yes (Hospitalization)
  Sender: FDA-Public Use
  Company Number: ES-PFIZER INC-2008007177

PATIENT
  Age: 55 Year
  Sex: Male

DRUGS (8)
  1. VFEND [Suspect]
     Indication: PNEUMONIA
     Route: 042
     Dates: start: 20070504, end: 20070505
  2. AMIKACIN SULFATE [Concomitant]
     Dates: start: 20070427, end: 20070515
  3. TAZOCEL [Concomitant]
     Dates: start: 20070427, end: 20070512
  4. OMEPRAZOLE [Concomitant]
  5. VANCOMYCIN [Concomitant]
     Dates: start: 20070503, end: 20070512
  6. AERO-RED [Concomitant]
     Dates: start: 20070421, end: 20070515
  7. ACETAMINOPHEN [Concomitant]
     Dates: start: 20070422, end: 20070515
  8. EMPORTAL [Concomitant]
     Dates: start: 20070421, end: 20070515

REACTIONS (2)
  - HALLUCINATION [None]
  - PHOTOPSIA [None]
